FAERS Safety Report 10266297 (Version 2)
Quarter: 2014Q3

REPORT INFORMATION
  Report Type: Spontaneous
  Country: US (occurrence: US)
  Receive Date: 20140627
  Receipt Date: 20140703
  Transmission Date: 20150326
  Serious: Yes (Other)
  Sender: FDA-Public Use
  Company Number: US-TEVA-490789USA

PATIENT
  Age: 58 Year

DRUGS (1)
  1. CEFDINIR. [Suspect]
     Active Substance: CEFDINIR

REACTIONS (5)
  - Dysphonia [Unknown]
  - Scar [Unknown]
  - Immune system disorder [Unknown]
  - Goitre [Unknown]
  - Clostridium difficile infection [Unknown]
